FAERS Safety Report 9720552 (Version 2)
Quarter: 2013Q4

REPORT INFORMATION
  Report Type: Spontaneous
  Country: ZA (occurrence: ZA)
  Receive Date: 20131129
  Receipt Date: 20131223
  Transmission Date: 20140711
  Serious: Yes (Other)
  Sender: FDA-Public Use
  Company Number: ZA-ASTRAZENECA-2013SE87082

PATIENT
  Sex: Male

DRUGS (1)
  1. NEXIAM [Suspect]
     Route: 048
     Dates: start: 2013

REACTIONS (3)
  - Muscle atrophy [Unknown]
  - Weight decreased [Unknown]
  - Intentional drug misuse [Unknown]
